FAERS Safety Report 5162157-7 (Version None)
Quarter: 2006Q4

REPORT INFORMATION
  Report Type: 
  Country: None (occurrence: None)
  Receive Date: 20061121
  Receipt Date: 20061117
  Transmission Date: 20070319
  Serious: Yes (Death, Life-Threatening, Other)
  Sender: FDA-Public Use
  Company Number: 2006S1000225

PATIENT
  Age: 1 Day
  Sex: Female

DRUGS (10)
  1. NITRIC OXIDE [Suspect]
     Indication: LUNG DISORDER
     Dosage: 5 PPM; CONT, INH
     Route: 055
     Dates: start: 20060724, end: 20060731
  2. NITRIC OXIDE [Suspect]
     Indication: PROPHYLAXIS
     Dosage: 5 PPM; CONT, INH
     Route: 055
     Dates: start: 20060724, end: 20060731
  3. AMUKIN (AMIKACIN SULFATE) [Concomitant]
  4. PENTREXYL (AMPICILLIN) [Concomitant]
  5. SANDOGLOBULIN [Concomitant]
  6. PHYTONADIONE [Concomitant]
  7. SODIUM BICARBONATE IN PLASTIC CONTAINER [Concomitant]
  8. ACTRAPID HUMAN (INSULIN HUMAN) [Concomitant]
  9. DOPAMINE HCL [Concomitant]
  10. FENTANYL [Concomitant]

REACTIONS (6)
  - BRADYCARDIA NEONATAL [None]
  - GENERAL PHYSICAL HEALTH DETERIORATION [None]
  - METABOLIC ACIDOSIS [None]
  - NEONATAL HYPOTENSION [None]
  - OXYGEN SATURATION DECREASED [None]
  - PULMONARY HYPERTENSION [None]
